FAERS Safety Report 8789975 (Version 1)
Quarter: 2012Q4

REPORT INFORMATION
  Report Type: 
  Country: US (occurrence: US)
  Receive Date: 20120917
  Receipt Date: 20120917
  Transmission Date: 20130627
  Serious: Yes (Hospitalization)
  Sender: FDA-Public Use
  Company Number: US-AMGEN-USASP2012056560

PATIENT

DRUGS (1)
  1. SENSIPAR [Suspect]
     Indication: RENAL OSTEODYSTROPHY
     Dosage: 30 mg, qd
     Route: 048

REACTIONS (1)
  - Respiratory failure [Not Recovered/Not Resolved]
